FAERS Safety Report 7295241-2 (Version None)
Quarter: 2011Q1

REPORT INFORMATION
  Report Type: 
  Country: None (occurrence: None)
  Receive Date: 20110216
  Receipt Date: 20110113
  Transmission Date: 20110831
  Serious: No
  Sender: FDA-Public Use
  Company Number: A0906811A

PATIENT
  Age: 49 Year
  Sex: Male
  Weight: 84.5 kg

DRUGS (1)
  1. VOTRIENT [Suspect]
     Indication: RENAL CANCER
     Dosage: 800MG PER DAY
     Route: 048
     Dates: start: 20101130

REACTIONS (3)
  - SKIN DEPIGMENTATION [None]
  - DIARRHOEA [None]
  - FAECES DISCOLOURED [None]
